FAERS Safety Report 5618594-7 (Version None)
Quarter: 2008Q1

REPORT INFORMATION
  Report Type: 
  Country: None (occurrence: None)
  Receive Date: 20080207
  Receipt Date: 20080128
  Transmission Date: 20080703
  Serious: Yes (Hospitalization)
  Sender: FDA-Public Use
  Company Number: ES-JNJFOC-20080107579

PATIENT
  Age: 32 Year
  Sex: Male

DRUGS (5)
  1. TOPIRAMATE [Suspect]
     Indication: OBSESSIVE-COMPULSIVE DISORDER
  2. CLOMIPRAMINE HCL [Concomitant]
  3. ARIPIPRAZOLE [Concomitant]
  4. BIPERIDEN HYDROCHLORIDE TAB [Concomitant]
  5. TRIFLUOPERAZINE [Concomitant]

REACTIONS (3)
  - CONVULSION [None]
  - HEAT STROKE [None]
  - LOSS OF CONSCIOUSNESS [None]
